FAERS Safety Report 24671661 (Version 1)
Quarter: 2024Q4

REPORT INFORMATION
  Report Type: Spontaneous
  Country: JP (occurrence: JP)
  Receive Date: 20241127
  Receipt Date: 20241127
  Transmission Date: 20250114
  Serious: Yes (Hospitalization)
  Sender: PFIZER
  Company Number: JP-PFIZER INC-202400255993

PATIENT

DRUGS (1)
  1. ELREXFIO [Suspect]
     Active Substance: ELRANATAMAB-BCMM
     Indication: Plasma cell myeloma
     Dosage: 76 MG, DAILY

REACTIONS (3)
  - Compression fracture [Not Recovered/Not Resolved]
  - Neoplasm progression [Recovering/Resolving]
  - Anaemia [Not Recovered/Not Resolved]
